FAERS Safety Report 6671203-0 (Version None)
Quarter: 2010Q2

REPORT INFORMATION
  Report Type: 
  Country: None (occurrence: None)
  Receive Date: 20100407
  Receipt Date: 20100331
  Transmission Date: 20101027
  Serious: Yes (Other)
  Sender: FDA-Public Use
  Company Number: US-ELI_LILLY_AND_COMPANY-US201004000576

PATIENT
  Sex: Female
  Weight: 47.166 kg

DRUGS (8)
  1. HUMULIN N [Suspect]
     Indication: DIABETES MELLITUS
     Dosage: 7 U, 2/D
     Dates: start: 19880101
  2. HUMULIN N [Suspect]
     Dosage: 7 U, 2/D
     Dates: start: 19880101
  3. HUMULIN N [Suspect]
     Dosage: UNK, AS NEEDED
     Dates: start: 19880101
  4. HUMULIN N [Suspect]
     Dates: start: 19880101
  5. HUMALOG [Suspect]
     Indication: DIABETES MELLITUS
     Dosage: 2.5 U, UNK
     Dates: start: 20000101
  6. HUMALOG [Suspect]
     Dosage: UNK, AS NEEDED
     Dates: start: 20000101
  7. HUMULIN R [Suspect]
     Indication: DIABETES MELLITUS
     Dosage: 4 U, 2/D
     Dates: start: 19880101, end: 20000101
  8. GLUCAGON [Concomitant]

REACTIONS (7)
  - BLOOD GLUCOSE INCREASED [None]
  - DRUG HYPERSENSITIVITY [None]
  - DRUG INEFFECTIVE [None]
  - HYPOGLYCAEMIA UNAWARENESS [None]
  - HYPOGLYCAEMIC UNCONSCIOUSNESS [None]
  - PRODUCT QUALITY ISSUE [None]
  - WRONG TECHNIQUE IN DRUG USAGE PROCESS [None]
